FAERS Safety Report 18952797 (Version 1)
Quarter: 2021Q1

REPORT INFORMATION
  Report Type: Spontaneous
  Country: CA (occurrence: CA)
  Receive Date: 20210301
  Receipt Date: 20210301
  Transmission Date: 20210420
  Serious: Yes (Life-Threatening, Hospitalization)
  Sender: FDA-Public Use
  Company Number: CA-JNJFOC-20210243418

PATIENT
  Age: 53 Year
  Sex: Male
  Weight: 118 kg

DRUGS (4)
  1. CRESTOR [Concomitant]
     Active Substance: ROSUVASTATIN CALCIUM
  2. INVOKANA [Suspect]
     Active Substance: CANAGLIFLOZIN
     Indication: TYPE 2 DIABETES MELLITUS
     Route: 048
  3. TYLENOL [Concomitant]
     Active Substance: ACETAMINOPHEN
  4. DIAMICRON [Concomitant]
     Active Substance: GLICLAZIDE

REACTIONS (3)
  - Diarrhoea [Recovered/Resolved]
  - Ketoacidosis [Recovered/Resolved]
  - Decreased appetite [Recovered/Resolved]
